FAERS Safety Report 16451830 (Version 1)
Quarter: 2019Q2

REPORT INFORMATION
  Report Type: Report from Study
  Country: MX (occurrence: MX)
  Receive Date: 20190619
  Receipt Date: 20190619
  Transmission Date: 20190711
  Serious: Yes (Other)
  Sender: FDA-Public Use
  Company Number: PHHY2019MX076786

PATIENT
  Age: 54 Year
  Sex: Female
  Weight: 63 kg

DRUGS (5)
  1. KISQALI [Suspect]
     Active Substance: RIBOCICLIB
     Dosage: 3 DF, (200 MG) ONCE A DAY
     Route: 048
     Dates: start: 201810, end: 201902
  2. FULVESTRANT. [Concomitant]
     Active Substance: FULVESTRANT
     Indication: BONE CANCER METASTATIC
     Dosage: 2 DF, QMO
     Route: 030
     Dates: start: 201810
  3. KISQALI [Suspect]
     Active Substance: RIBOCICLIB
     Indication: BONE CANCER METASTATIC
     Dosage: 600 MG, UNK
     Route: 065
  4. KISQALI [Suspect]
     Active Substance: RIBOCICLIB
     Dosage: UNK
     Route: 065
  5. KISQALI [Suspect]
     Active Substance: RIBOCICLIB
     Dosage: 400 MG, UNK
     Route: 065

REACTIONS (14)
  - Mucosal disorder [Unknown]
  - Lacrimation increased [Unknown]
  - Product use in unapproved indication [Unknown]
  - Hypersensitivity [Unknown]
  - Choking [Unknown]
  - Pruritus [Unknown]
  - Eczema [Recovering/Resolving]
  - Candida infection [Unknown]
  - Acne [Unknown]
  - Eye pruritus [Unknown]
  - Blood count abnormal [Recovering/Resolving]
  - Fatigue [Unknown]
  - Oral herpes [Recovering/Resolving]
  - Dermatitis [Unknown]

NARRATIVE: CASE EVENT DATE: 201811
